FAERS Safety Report 25268128 (Version 1)
Quarter: 2025Q2

REPORT INFORMATION
  Report Type: Spontaneous
  Country: US (occurrence: None)
  Receive Date: 20250502
  Receipt Date: 20250502
  Transmission Date: 20250717
  Serious: No
  Sender: FDA-CTU
  Company Number: None

PATIENT
  Age: 89 Year
  Sex: Female
  Weight: 54 kg

DRUGS (2)
  1. CABOMETYX [Suspect]
     Active Substance: CABOZANTINIB S-MALATE
     Indication: Breast cancer female
     Dosage: FREQUENCY : DAILY;?
     Route: 048
  2. BENZOCAINE\MENTHOL [Suspect]
     Active Substance: BENZOCAINE\MENTHOL

REACTIONS (2)
  - Oral mucosal blistering [None]
  - Glossodynia [None]

NARRATIVE: CASE EVENT DATE: 20250411
